FAERS Safety Report 5375875-2 (Version None)
Quarter: 2007Q3

REPORT INFORMATION
  Report Type: 
  Country: None (occurrence: None)
  Receive Date: 20070702
  Receipt Date: 20070620
  Transmission Date: 20080115
  Serious: Yes (Other)
  Sender: FDA-Public Use
  Company Number: PHBS2007IT10640

PATIENT
  Age: 50 Year
  Sex: Male

DRUGS (5)
  1. CERTICAN [Suspect]
     Dosage: 1.25 MG/DAY
     Route: 048
     Dates: start: 20070210, end: 20070612
  2. TRIATEC [Suspect]
     Dosage: 2.5 MG/DAY
     Route: 048
     Dates: start: 20070523, end: 20070612
  3. ASPIRIN [Suspect]
     Dosage: 100 MG, QOD
     Dates: start: 19961216, end: 20070612
  4. CYCLOSPORINE [Suspect]
     Dosage: 100 MG, UNK
     Route: 048
  5. PREDNISONE [Suspect]
     Dosage: 5 MG, UNK
     Route: 048

REACTIONS (1)
  - ANGIOEDEMA [None]
